FAERS Safety Report 6464687-4 (Version None)
Quarter: 2009Q4

REPORT INFORMATION
  Report Type: 
  Country: None (occurrence: None)
  Receive Date: 20091201
  Receipt Date: 20091123
  Transmission Date: 20100525
  Serious: Yes (Life-Threatening)
  Sender: FDA-Public Use
  Company Number: CN-BRISTOL-MYERS SQUIBB COMPANY-14870968

PATIENT
  Age: 38 Year
  Sex: Male

DRUGS (1)
  1. VELOCEF INJ [Suspect]
     Indication: TRACHEITIS
     Dosage: 1DF-2.0G/IVGTT
     Route: 041

REACTIONS (1)
  - ANAPHYLACTIC SHOCK [None]
